FAERS Safety Report 24279440 (Version 2)
Quarter: 2024Q3

REPORT INFORMATION
  Report Type: Spontaneous
  Country: GB (occurrence: GB)
  Receive Date: 20240903
  Receipt Date: 20240904
  Transmission Date: 20241017
  Serious: Yes (Other)
  Sender: ABBVIE
  Company Number: None

PATIENT
  Age: 43 Year
  Sex: Male

DRUGS (2)
  1. ADALIMUMAB [Suspect]
     Active Substance: ADALIMUMAB
     Indication: Psoriasis
     Dosage: 40MG
     Route: 058
     Dates: start: 20170613
  2. ADALIMUMAB [Suspect]
     Active Substance: ADALIMUMAB
     Dosage: 40 MG
     Route: 058
     Dates: start: 202001, end: 20240130

REACTIONS (3)
  - Neurological symptom [Recovered/Resolved]
  - Inappropriate schedule of product administration [Unknown]
  - Joint lock [Recovered/Resolved]

NARRATIVE: CASE EVENT DATE: 20200101
